FAERS Safety Report 4640898-5 (Version None)
Quarter: 2005Q2

REPORT INFORMATION
  Report Type: 
  Country: None (occurrence: None)
  Receive Date: 20050324
  Receipt Date: 20041222
  Transmission Date: 20051028
  Serious: No
  Sender: FDA-Public Use
  Company Number: 211302

PATIENT
  Age: 53 Year
  Sex: Female
  Weight: 128.8 kg

DRUGS (2)
  1. AVASTIN [Suspect]
     Indication: COLON CANCER
     Dosage: 640 MG, Q2W, INTRAVENOUS
     Route: 042
  2. DECADRON SRC [Concomitant]

REACTIONS (1)
  - NAIL BED BLEEDING [None]
